FAERS Safety Report 7935715-1 (Version None)
Quarter: 2011Q4

REPORT INFORMATION
  Report Type: 
  Country: None (occurrence: None)
  Receive Date: 20111123
  Receipt Date: 20111114
  Transmission Date: 20120403
  Serious: Yes (Other)
  Sender: FDA-Public Use
  Company Number: CA-JNJFOC-20111106229

PATIENT
  Sex: Female
  Weight: 70 kg

DRUGS (5)
  1. METHOTREXATE [Concomitant]
     Dosage: 2.5 - 5 PILLS WEEKLY
     Route: 065
  2. FOLIC ACID [Concomitant]
     Dosage: HALF PILLS X 5 DAYS PER WEEK
     Route: 065
  3. ELAVIL [Concomitant]
     Route: 048
  4. REMICADE [Suspect]
     Indication: RHEUMATOID ARTHRITIS
     Route: 042
     Dates: start: 20030401
  5. RANITIDINE [Concomitant]
     Route: 048

REACTIONS (2)
  - HYPOAESTHESIA ORAL [None]
  - PARAESTHESIA [None]
